FAERS Safety Report 5462900-3 (Version None)
Quarter: 2007Q3

REPORT INFORMATION
  Report Type: 
  Country: None (occurrence: None)
  Receive Date: 20070920
  Receipt Date: 20070221
  Transmission Date: 20080115
  Serious: No
  Sender: FDA-Public Use
  Company Number: US-BAUSCH-2007BL000568

PATIENT
  Age: 51 Year
  Sex: Female

DRUGS (4)
  1. NEOMYCIN AND POLYMYXIN B SULFATES AND HYDROCORTISONE OTIC SUSPENSION [Suspect]
     Route: 047
     Dates: start: 20070221, end: 20070221
  2. LEXAPRO [Concomitant]
  3. WELLBUTRIN [Concomitant]
  4. ZETIA [Concomitant]

REACTIONS (2)
  - EYE PRURITUS [None]
  - MEDICATION ERROR [None]
